FAERS Safety Report 9392664 (Version 1)
Quarter: 2013Q3

REPORT INFORMATION
  Report Type: Spontaneous
  Country: JP (occurrence: JP)
  Receive Date: 20130710
  Receipt Date: 20130710
  Transmission Date: 20140515
  Serious: Yes (Hospitalization)
  Sender: FDA-Public Use
  Company Number: JP-ROCHE-1246047

PATIENT
  Age: 84 Year
  Sex: Male

DRUGS (10)
  1. RIVOTRIL [Suspect]
     Indication: PRODUCT USED FOR UNKNOWN INDICATION
     Dosage: DOSAGE IS UNCERTAIN.
     Route: 048
  2. WARFARIN POTASSIUM [Suspect]
     Indication: PRODUCT USED FOR UNKNOWN INDICATION
     Route: 048
  3. ASPIRIN [Suspect]
     Indication: PRODUCT USED FOR UNKNOWN INDICATION
     Route: 048
  4. QUETIAPINE FUMARATE [Suspect]
     Dosage: DOSAGE IS UNCERTAIN.
     Route: 048
  5. ALLOPURINOL [Suspect]
     Indication: PRODUCT USED FOR UNKNOWN INDICATION
     Dosage: DOSAGE IS UNCERTAIN.
     Route: 048
  6. VALSARTAN [Concomitant]
     Dosage: DOSAGE IS UNCERTAIN.
     Route: 048
  7. NITROGLYCERIN [Concomitant]
     Dosage: DOSAGE IS UNCERTAIN.
     Route: 048
  8. NICORANDIL [Concomitant]
     Dosage: DOSAGE IS UNCERTAIN.
     Route: 048
  9. OMEPRAZOLE [Concomitant]
     Dosage: DOSAGE IS UNCERTAIN.
     Route: 048
  10. CLONAZEPAM [Concomitant]
     Dosage: DOSAGE IS UNCERTAIN.
     Route: 048

REACTIONS (4)
  - Hypocoagulable state [Unknown]
  - Intestinal haematoma [Unknown]
  - White blood cell count increased [Unknown]
  - Anaemia [Unknown]
